FAERS Safety Report 16076850 (Version 2)
Quarter: 2019Q1

REPORT INFORMATION
  Report Type: Spontaneous
  Country: US (occurrence: US)
  Receive Date: 20190315
  Receipt Date: 20190322
  Transmission Date: 20190418
  Serious: No
  Sender: FDA-Public Use
  Company Number: US-ELI_LILLY_AND_COMPANY-US201903001725

PATIENT
  Sex: Female

DRUGS (2)
  1. TRULICITY [Suspect]
     Active Substance: DULAGLUTIDE
     Indication: PRODUCT USED FOR UNKNOWN INDICATION
     Dosage: 0.75 MG, UNKNOWN
     Route: 065
  2. TRULICITY [Suspect]
     Active Substance: DULAGLUTIDE
     Dosage: 0.75 MG, UNKNOWN
     Route: 065

REACTIONS (10)
  - Sciatica [Unknown]
  - Drug ineffective [Unknown]
  - Nausea [Unknown]
  - Food craving [Unknown]
  - Decreased appetite [Unknown]
  - Weight decreased [Unknown]
  - Injection site pain [Unknown]
  - Diarrhoea [Unknown]
  - Arthritis [Unknown]
  - Reading disorder [Unknown]
